FAERS Safety Report 8392454-3 (Version None)
Quarter: 2012Q2

REPORT INFORMATION
  Report Type: 
  Country: None (occurrence: None)
  Receive Date: 20120529
  Receipt Date: 20120523
  Transmission Date: 20120825
  Serious: No
  Sender: FDA-Public Use
  Company Number: US-PFIZER INC-2012125772

PATIENT
  Sex: Female

DRUGS (3)
  1. ASPIRIN [Concomitant]
     Dosage: 81 MG, UNK
  2. ADVIL [Suspect]
     Indication: EAR PAIN
     Dosage: HREE IN THE MORNING AND THREE IN THE AFTERNOON
     Dates: start: 20120523, end: 20120523
  3. BISMUTH SUBSALICYLATE [Concomitant]
     Indication: NAUSEA
     Dosage: UNK

REACTIONS (7)
  - PAIN [None]
  - NAUSEA [None]
  - FEELING ABNORMAL [None]
  - MALAISE [None]
  - DYSPHAGIA [None]
  - VOMITING [None]
  - FOREIGN BODY [None]
